FAERS Safety Report 13419251 (Version 1)
Quarter: 2017Q2

REPORT INFORMATION
  Report Type: Spontaneous
  Country: US (occurrence: US)
  Receive Date: 20170407
  Receipt Date: 20170407
  Transmission Date: 20170830
  Serious: Yes (Other)
  Sender: FDA-Public Use
  Company Number: US-WEST-WARD PHARMACEUTICALS CORP.-US-H14001-17-00925

PATIENT
  Age: 53 Year
  Sex: Male

DRUGS (9)
  1. GABAPENTIN. [Concomitant]
     Active Substance: GABAPENTIN
     Indication: MAJOR DEPRESSION
     Route: 065
  2. BUPROPION-XL [Concomitant]
     Indication: MAJOR DEPRESSION
     Route: 065
  3. BUPROPION-XL [Concomitant]
     Indication: OBSESSIVE-COMPULSIVE DISORDER
     Route: 065
  4. GABAPENTIN. [Concomitant]
     Active Substance: GABAPENTIN
     Indication: SOCIAL ANXIETY DISORDER
  5. GABAPENTIN. [Concomitant]
     Active Substance: GABAPENTIN
     Indication: OBSESSIVE-COMPULSIVE DISORDER
  6. QUETIAPINE. [Suspect]
     Active Substance: QUETIAPINE
     Indication: OBSESSIVE-COMPULSIVE DISORDER
  7. BUPROPION-XL [Concomitant]
     Indication: SOCIAL ANXIETY DISORDER
  8. QUETIAPINE. [Suspect]
     Active Substance: QUETIAPINE
     Indication: MAJOR DEPRESSION
     Dosage: NIGHTLY
     Route: 065
  9. QUETIAPINE. [Suspect]
     Active Substance: QUETIAPINE
     Indication: SOCIAL ANXIETY DISORDER

REACTIONS (1)
  - Oculogyric crisis [Recovering/Resolving]
